FAERS Safety Report 9408976 (Version 1)
Quarter: 2013Q3

REPORT INFORMATION
  Report Type: Spontaneous
  Country: US (occurrence: None)
  Receive Date: 20130717
  Receipt Date: 20130717
  Transmission Date: 20140515
  Serious: Yes (Hospitalization)
  Sender: FDA-Public Use
  Company Number: None

PATIENT
  Age: 23 Year
  Sex: Female

DRUGS (1)
  1. TECFIDERA [Suspect]
     Route: 048
     Dates: start: 20130517, end: 20130703

REACTIONS (2)
  - Dyspnoea [None]
  - Dyspnoea [None]
